FAERS Safety Report 10045896 (Version 1)
Quarter: 2014Q1

REPORT INFORMATION
  Report Type: Spontaneous
  Country: US (occurrence: US)
  Receive Date: 20140329
  Receipt Date: 20140329
  Transmission Date: 20141002
  Serious: No
  Sender: FDA-Public Use
  Company Number: US-009507513-1403USA012952

PATIENT
  Sex: 0

DRUGS (1)
  1. NEXPLANON [Suspect]

REACTIONS (1)
  - Device difficult to use [Unknown]
